FAERS Safety Report 20523844 (Version 1)
Quarter: 2022Q1

REPORT INFORMATION
  Report Type: Spontaneous
  Country: US (occurrence: US)
  Receive Date: 20220228
  Receipt Date: 20220228
  Transmission Date: 20220423
  Serious: No
  Sender: FDA-Public Use
  Company Number: US-ENDO PHARMACEUTICALS INC-2021-010339

PATIENT
  Sex: Female

DRUGS (2)
  1. NASCOBAL [Suspect]
     Active Substance: CYANOCOBALAMIN
     Indication: Product used for unknown indication
     Dosage: UNK UNKNOWN, PRN
     Route: 065
     Dates: start: 2015
  2. NASCOBAL [Suspect]
     Active Substance: CYANOCOBALAMIN
     Indication: Product used for unknown indication
     Dosage: UNK UNKNOWN, PRN
     Route: 065
     Dates: start: 2015

REACTIONS (2)
  - Device malfunction [None]
  - Blood test abnormal [Unknown]

NARRATIVE: CASE EVENT DATE: 20210706
